FAERS Safety Report 7333011-7 (Version None)
Quarter: 2011Q1

REPORT INFORMATION
  Report Type: 
  Country: None (occurrence: None)
  Receive Date: 20110222
  Receipt Date: 20110208
  Transmission Date: 20110831
  Serious: Yes (Hospitalization)
  Sender: FDA-Public Use
  Company Number: 2011SP004402

PATIENT
  Age: 70 Year
  Sex: Female
  Weight: 40.1 kg

DRUGS (14)
  1. DIAZEPAM [Concomitant]
  2. PRIMPERAN TAB [Concomitant]
  3. TEMODAL [Suspect]
     Indication: GLIOBLASTOMA MULTIFORME
     Dosage: 100 MG;QD;PO
     Route: 048
     Dates: start: 20101129, end: 20110111
  4. NAVOBAN [Concomitant]
  5. PREDNISOLONE [Concomitant]
  6. COTRIM [Concomitant]
  7. PURSENNID (SENNOSIDE) [Concomitant]
  8. RADIOTHERAPY [Concomitant]
  9. GASTER D [Concomitant]
  10. FERROMIA /00023520/ [Concomitant]
  11. MIYA BM [Concomitant]
  12. TEGRETOL [Concomitant]
  13. PAXIL [Concomitant]
  14. MAGLAX [Concomitant]

REACTIONS (8)
  - PYREXIA [None]
  - ANAEMIA [None]
  - FEBRILE NEUTROPENIA [None]
  - LYMPHOCYTE COUNT DECREASED [None]
  - PLATELET COUNT DECREASED [None]
  - WHITE BLOOD CELL COUNT DECREASED [None]
  - NEUTROPHIL COUNT DECREASED [None]
  - RASH [None]
